FAERS Safety Report 18749785 (Version 1)
Quarter: 2021Q1

REPORT INFORMATION
  Report Type: Spontaneous
  Country: US (occurrence: US)
  Receive Date: 20210117
  Receipt Date: 20210117
  Transmission Date: 20210419
  Serious: No
  Sender: FDA-Public Use
  Company Number: US-009507513-2101USA000243

PATIENT
  Sex: Female

DRUGS (7)
  1. ESTRING [Suspect]
     Active Substance: ESTRADIOL
     Indication: ABDOMINAL PAIN UPPER
  2. ZOCOR [Suspect]
     Active Substance: SIMVASTATIN
     Dosage: UNK
  3. NICOTROL [Suspect]
     Active Substance: NICOTINE
     Dosage: 10 MILLIGRAM, INHALE DEEP INTO BACK OF THROAT OR PUFF IN SHORT BREATHS, 20 MIN OF USE PER CARTRIDGE
  4. ESTRING [Suspect]
     Active Substance: ESTRADIOL
     Indication: FATIGUE
  5. ESTRING [Suspect]
     Active Substance: ESTRADIOL
     Indication: ABDOMINAL DISTENSION
  6. CHANTIX [Suspect]
     Active Substance: VARENICLINE TARTRATE
     Dosage: UNK
  7. ESTRING [Suspect]
     Active Substance: ESTRADIOL
     Indication: BONE PAIN
     Dosage: 2 MILLIGRAM, INSERT 1 IN VAGINA EVERY 3 MONTHS CHANGE EVERY 3 MONTHS
     Route: 067

REACTIONS (1)
  - Myalgia [Unknown]

NARRATIVE: CASE EVENT DATE: 20111214
